FAERS Safety Report 4289809-5 (Version None)
Quarter: 2004Q1

REPORT INFORMATION
  Report Type: 
  Country: None (occurrence: None)
  Receive Date: 20040210
  Receipt Date: 20031215
  Transmission Date: 20041129
  Serious: Yes (Hospitalization)
  Sender: FDA-Public Use
  Company Number: DE-GLAXOSMITHKLINE-D0042689A

PATIENT
  Age: 18 Year
  Sex: Male
  Weight: 71 kg

DRUGS (3)
  1. LAMICTAL [Suspect]
     Dosage: 25MG SEE DOSAGE TEXT
     Route: 048
     Dates: start: 20031213, end: 20031213
  2. TRILEPTAL [Suspect]
     Dosage: 300MG SINGLE DOSE
     Route: 048
     Dates: start: 20031213, end: 20031213
  3. ZOLOFT [Suspect]
     Dosage: 50MG SINGLE DOSE
     Route: 048
     Dates: start: 20031213, end: 20031213

REACTIONS (4)
  - DIZZINESS [None]
  - HYPOTENSION [None]
  - ILL-DEFINED DISORDER [None]
  - SUICIDE ATTEMPT [None]
